FAERS Safety Report 7387398-X (Version None)
Quarter: 2011Q1

REPORT INFORMATION
  Report Type: 
  Country: None (occurrence: None)
  Receive Date: 20110331
  Receipt Date: 20110322
  Transmission Date: 20110831
  Serious: Yes (Hospitalization, Other)
  Sender: FDA-Public Use
  Company Number: US-ASTRAZENECA-2011SE08966

PATIENT
  Age: 60 Year
  Sex: Male
  Weight: 103.9 kg

DRUGS (11)
  1. ALLOPURINOL [Concomitant]
  2. PROZAC [Concomitant]
  3. NEURONTIN [Concomitant]
  4. LISINOPRIL [Concomitant]
  5. NEXIUM [Suspect]
     Indication: GASTROOESOPHAGEAL REFLUX DISEASE
     Route: 048
     Dates: start: 20070101
  6. SEROQUEL [Suspect]
     Indication: DEPRESSION
     Route: 048
     Dates: start: 20070101
  7. LOVASTATIN [Concomitant]
  8. GABAPENTIN [Concomitant]
  9. METFORMIN HCL [Concomitant]
  10. TRAZODONE HCL [Concomitant]
  11. SEROQUEL [Suspect]
     Indication: BIPOLAR DISORDER
     Route: 048
     Dates: start: 20070101

REACTIONS (4)
  - WHEEZING [None]
  - LUNG DISORDER [None]
  - LUNG NEOPLASM MALIGNANT [None]
  - DYSPNOEA [None]
